FAERS Safety Report 4272560-5 (Version None)
Quarter: 2004Q1

REPORT INFORMATION
  Report Type: 
  Country: None (occurrence: None)
  Receive Date: 20040114
  Receipt Date: 20040108
  Transmission Date: 20041129
  Serious: Yes (Death)
  Sender: FDA-Public Use
  Company Number: NSADSS2003019994

PATIENT
  Age: 63 Year
  Sex: Female

DRUGS (1)
  1. RISPERDAL [Suspect]
     Indication: SCHIZOPHRENIA
     Dosage: LOW DOSE

REACTIONS (8)
  - AMYOTROPHIC LATERAL SCLEROSIS [None]
  - APHASIA [None]
  - BRAIN STEM INFARCTION [None]
  - CEREBROVASCULAR ACCIDENT [None]
  - DYSPHAGIA [None]
  - GAIT DISTURBANCE [None]
  - JOINT CREPITATION [None]
  - RESPIRATORY FAILURE [None]
